FAERS Safety Report 4912020-9 (Version None)
Quarter: 2006Q1

REPORT INFORMATION
  Report Type: 
  Country: None (occurrence: None)
  Receive Date: 20060213
  Receipt Date: 20060129
  Transmission Date: 20060701
  Serious: Yes (Other)
  Sender: FDA-Public Use
  Company Number: 2006015422

PATIENT
  Age: 46 Year
  Sex: Female

DRUGS (2)
  1. LYRICA [Suspect]
     Indication: HEADACHE
     Dosage: 75 MG (75 MG, NIGHTLY)
     Dates: start: 20060123, end: 20060128
  2. DOXYCYCLINE [Concomitant]

REACTIONS (4)
  - ABASIA [None]
  - ABDOMINAL DISTENSION [None]
  - DIZZINESS [None]
  - VOMITING [None]
